APPROVED DRUG PRODUCT: TRIAMTERENE
Active Ingredient: TRIAMTERENE
Strength: 100MG
Dosage Form/Route: CAPSULE;ORAL
Application: A214768 | Product #002 | TE Code: AB
Applicant: BIOCON GENERICS INC
Approved: Jul 6, 2022 | RLD: No | RS: No | Type: RX